FAERS Safety Report 14920298 (Version 5)
Quarter: 2019Q1

REPORT INFORMATION
  Report Type: Report from Study
  Country: IT (occurrence: IT)
  Receive Date: 20180521
  Receipt Date: 20190331
  Transmission Date: 20190417
  Serious: Yes (Death, Hospitalization, Other)
  Sender: FDA-Public Use
  Company Number: PHHY2018IT007957

PATIENT
  Age: 66 Year
  Sex: Male
  Weight: 69 kg

DRUGS (7)
  1. TRAMETINIB [Suspect]
     Active Substance: TRAMETINIB
     Dosage: 2 MG, QD
     Route: 048
     Dates: start: 20180511
  2. LEVETIRACETAM. [Concomitant]
     Active Substance: LEVETIRACETAM
     Indication: PROPHYLAXIS
     Dosage: 2 G, QD
     Route: 065
     Dates: start: 201801
  3. SOLDESAM [Concomitant]
     Active Substance: DEXAMETHASONE
     Indication: METASTASES TO CENTRAL NERVOUS SYSTEM
     Dosage: 64 OT, UNK
     Route: 048
     Dates: start: 20171224, end: 20180304
  4. TAFINLAR [Suspect]
     Active Substance: DABRAFENIB MESYLATE
     Indication: METASTATIC MALIGNANT MELANOMA
     Dosage: 300 MG, QD
     Route: 048
     Dates: start: 20180111, end: 20180504
  5. TAFINLAR [Suspect]
     Active Substance: DABRAFENIB MESYLATE
     Dosage: 300 MG, QD
     Route: 048
     Dates: start: 20180511
  6. TRAMETINIB [Suspect]
     Active Substance: TRAMETINIB
     Indication: METASTATIC MALIGNANT MELANOMA
     Dosage: 2 MG, QD
     Route: 048
     Dates: start: 20180111, end: 20180504
  7. SOLDESAM [Concomitant]
     Active Substance: DEXAMETHASONE
     Dosage: 32 OT, UNK
     Route: 048
     Dates: start: 20180305

REACTIONS (14)
  - Gastrointestinal haemorrhage [Not Recovered/Not Resolved]
  - Syncope [Recovered/Resolved]
  - Anaemia [Not Recovered/Not Resolved]
  - Pyrexia [Recovered/Resolved]
  - Anaemia [Recovered/Resolved]
  - Blood creatinine decreased [Unknown]
  - Protein total decreased [Unknown]
  - Metastatic malignant melanoma [Fatal]
  - Blood albumin decreased [Unknown]
  - Fall [Recovered/Resolved]
  - Asthenia [Unknown]
  - Malignant neoplasm progression [Fatal]
  - Metastases to gastrointestinal tract [Unknown]
  - Hypotension [Recovered/Resolved]

NARRATIVE: CASE EVENT DATE: 20180403
